FAERS Safety Report 23220620 (Version 16)
Quarter: 2024Q3

REPORT INFORMATION
  Report Type: Report from Study
  Country: US (occurrence: US)
  Receive Date: 20231123
  Receipt Date: 20240912
  Transmission Date: 20241017
  Serious: Yes (Hospitalization, Other)
  Sender: BOEHRINGER INGELHEIM
  Company Number: US-BoehringerIngelheim-2023-BI-215560

PATIENT
  Age: 65 Year
  Sex: Male
  Weight: 82.5 kg

DRUGS (30)
  1. OFEV [Suspect]
     Active Substance: NINTEDANIB
     Indication: Idiopathic pulmonary fibrosis
     Dosage: LOT NO: 108135,108455, 109045,202989,203667,204717,204718,205091A, 209015
     Route: 048
     Dates: start: 20220624
  2. OFEV [Suspect]
     Active Substance: NINTEDANIB
     Indication: Interstitial lung disease
     Route: 048
     Dates: end: 2024
  3. TYVASO DPI [Suspect]
     Active Substance: TREPROSTINIL
     Indication: Pulmonary arterial pressure
  4. TYVASO DPI [Suspect]
     Active Substance: TREPROSTINIL
  5. ZOLOFT [Suspect]
     Active Substance: SERTRALINE HYDROCHLORIDE
     Indication: Product used for unknown indication
  6. CRESTOR [Concomitant]
     Active Substance: ROSUVASTATIN CALCIUM
     Indication: Product used for unknown indication
  7. RABEPRAZOLE SODIUM [Concomitant]
     Active Substance: RABEPRAZOLE SODIUM
     Indication: Product used for unknown indication
  8. VITAMIN C [Concomitant]
     Active Substance: ASCORBIC ACID
     Indication: Product used for unknown indication
  9. DICYCLOMINE HYDROCHLORIDE [Concomitant]
     Active Substance: DICYCLOMINE HYDROCHLORIDE
     Indication: Product used for unknown indication
  10. POTASSIUM CHLORIDE [Concomitant]
     Active Substance: POTASSIUM CHLORIDE
     Indication: Product used for unknown indication
  11. ALLEGRA ALLERGY [Concomitant]
     Active Substance: FEXOFENADINE HYDROCHLORIDE
     Indication: Product used for unknown indication
  12. LASIX [Concomitant]
     Active Substance: FUROSEMIDE
     Indication: Product used for unknown indication
  13. MUPIROCIN [Concomitant]
     Active Substance: MUPIROCIN
     Indication: Product used for unknown indication
  14. OXCARBAZEPINE [Concomitant]
     Active Substance: OXCARBAZEPINE
     Indication: Product used for unknown indication
  15. VITAMIN D3 [Concomitant]
     Active Substance: CHOLECALCIFEROL
     Indication: Product used for unknown indication
  16. VITAMIN D2 [Concomitant]
     Active Substance: ERGOCALCIFEROL
     Indication: Product used for unknown indication
  17. BETAMETHASONE CLOTRIMAZOLE [Concomitant]
     Active Substance: BETAMETHASONE DIPROPIONATE\CLOTRIMAZOLE
     Indication: Product used for unknown indication
  18. CALCITRIOL [Concomitant]
     Active Substance: CALCITRIOL
     Indication: Product used for unknown indication
  19. IMODIUM A-D [Concomitant]
     Active Substance: LOPERAMIDE HYDROCHLORIDE
     Indication: Product used for unknown indication
  20. SILODOSIN [Concomitant]
     Active Substance: SILODOSIN
     Indication: Product used for unknown indication
  21. ZINC [Concomitant]
     Active Substance: ZINC
     Indication: Product used for unknown indication
  22. OXYGEN [Concomitant]
     Active Substance: OXYGEN
     Indication: Product used for unknown indication
  23. ALPHA LIPOIC ACID [Concomitant]
     Active Substance: .ALPHA.-LIPOIC ACID
     Indication: Product used for unknown indication
  24. CARVEDILOL [Concomitant]
     Active Substance: CARVEDILOL
     Indication: Product used for unknown indication
  25. ONDANSETRON [Concomitant]
     Active Substance: ONDANSETRON
     Indication: Product used for unknown indication
  26. ANDROGEL [Concomitant]
     Active Substance: TESTOSTERONE
     Indication: Product used for unknown indication
  27. CYCLOBENZAPRINE HYDROCHLORIDE [Concomitant]
     Active Substance: CYCLOBENZAPRINE HYDROCHLORIDE
     Indication: Product used for unknown indication
  28. LOSARTAN POTASSIUM [Concomitant]
     Active Substance: LOSARTAN POTASSIUM
     Indication: Product used for unknown indication
  29. BIOTIN [Concomitant]
     Active Substance: BIOTIN
     Indication: Product used for unknown indication
  30. CYMBALTA [Concomitant]
     Active Substance: DULOXETINE HYDROCHLORIDE
     Indication: Product used for unknown indication

REACTIONS (74)
  - Respiratory arrest [Not Recovered/Not Resolved]
  - Pulmonary hypertension [Not Recovered/Not Resolved]
  - Idiopathic pulmonary fibrosis [Recovered/Resolved]
  - Weight decreased [Not Recovered/Not Resolved]
  - COVID-19 [Recovered/Resolved]
  - Muscle atrophy [Unknown]
  - Suicidal ideation [Unknown]
  - Weight decreased [Not Recovered/Not Resolved]
  - Constipation [Not Recovered/Not Resolved]
  - Diarrhoea [Recovered/Resolved]
  - Muscle atrophy [Not Recovered/Not Resolved]
  - Muscular weakness [Not Recovered/Not Resolved]
  - Defaecation urgency [Not Recovered/Not Resolved]
  - Carbon dioxide increased [Not Recovered/Not Resolved]
  - Illness [Not Recovered/Not Resolved]
  - Influenza [Recovered/Resolved]
  - Diarrhoea [Recovered/Resolved]
  - Herpes zoster [Unknown]
  - Chest pain [Recovering/Resolving]
  - Pulmonary function test decreased [Not Recovered/Not Resolved]
  - Pulmonary artery dilatation [Not Recovered/Not Resolved]
  - Pneumonia [Recovered/Resolved]
  - Diarrhoea [Recovered/Resolved]
  - Parathyroid disorder [Not Recovered/Not Resolved]
  - Rash [Recovering/Resolving]
  - Heart rate increased [Recovering/Resolving]
  - Somnolence [Recovering/Resolving]
  - Abdominal distension [Recovering/Resolving]
  - Cardiac discomfort [Recovering/Resolving]
  - Gastroenteritis viral [Unknown]
  - Diarrhoea [Not Recovered/Not Resolved]
  - Constipation [Unknown]
  - Abdominal pain upper [Unknown]
  - Fatigue [Unknown]
  - Herpes zoster [Unknown]
  - Bendopnoea [Unknown]
  - COVID-19 [Unknown]
  - Chills [Unknown]
  - Neuralgia [Unknown]
  - Clubbing [Unknown]
  - Aspartate aminotransferase increased [Unknown]
  - Mouth haemorrhage [Unknown]
  - Throat irritation [Unknown]
  - Oropharyngeal pain [Unknown]
  - Oxygen saturation decreased [Unknown]
  - Nasopharyngitis [Unknown]
  - Decreased appetite [Unknown]
  - Arthritis [Not Recovered/Not Resolved]
  - Pneumonia [Not Recovered/Not Resolved]
  - Brain fog [Not Recovered/Not Resolved]
  - Heart rate increased [Unknown]
  - Taste disorder [Unknown]
  - Gastrointestinal pain [Recovered/Resolved]
  - Nausea [Recovered/Resolved]
  - Memory impairment [Not Recovered/Not Resolved]
  - Oxygen saturation decreased [Recovered/Resolved]
  - Dyspnoea exertional [Recovered/Resolved]
  - Gastrointestinal sounds abnormal [Not Recovered/Not Resolved]
  - Crohn^s disease [Not Recovered/Not Resolved]
  - Hyperthyroidism [Not Recovered/Not Resolved]
  - Blood glucose decreased [Not Recovered/Not Resolved]
  - Blood pressure decreased [Unknown]
  - Haemoptysis [Recovered/Resolved]
  - Faeces soft [Not Recovered/Not Resolved]
  - Exercise tolerance decreased [Unknown]
  - Diarrhoea [Recovering/Resolving]
  - Diarrhoea [Recovered/Resolved]
  - Blood pressure abnormal [Unknown]
  - Nausea [Not Recovered/Not Resolved]
  - Productive cough [Unknown]
  - Nasopharyngitis [Unknown]
  - Stress [Unknown]
  - Intentional product use issue [Unknown]
  - Lung diffusion test decreased [Unknown]

NARRATIVE: CASE EVENT DATE: 20220624
